FAERS Safety Report 6467227-9 (Version None)
Quarter: 2009Q4

REPORT INFORMATION
  Report Type: 
  Country: None (occurrence: None)
  Receive Date: 20091130
  Receipt Date: 20091116
  Transmission Date: 20100525
  Serious: Yes (Hospitalization)
  Sender: FDA-Public Use
  Company Number: 8054685

PATIENT
  Age: 56 Year
  Sex: Female
  Weight: 72.7 kg

DRUGS (5)
  1. CIMZIA [Suspect]
     Indication: CROHN'S DISEASE
     Dosage: 400 MG SC
     Route: 058
  2. PENTASA [Concomitant]
  3. VERAPAMIL [Concomitant]
  4. KLOR-CON [Concomitant]
  5. COZAAR [Concomitant]

REACTIONS (2)
  - BLOOD POTASSIUM DECREASED [None]
  - VERTIGO [None]
